FAERS Safety Report 24844722 (Version 1)
Quarter: 2025Q1

REPORT INFORMATION
  Report Type: Report from Study
  Country: CN (occurrence: CN)
  Receive Date: 20250115
  Receipt Date: 20250115
  Transmission Date: 20250408
  Serious: Yes (Other)
  Sender: ROCHE
  Company Number: CN-ROCHE-10000175581

PATIENT

DRUGS (2)
  1. OBINUTUZUMAB [Suspect]
     Active Substance: OBINUTUZUMAB
     Indication: Glomerulonephritis membranous
     Route: 042
  2. PREDNISONE [Suspect]
     Active Substance: PREDNISONE
     Indication: Glomerulonephritis membranous
     Route: 065

REACTIONS (5)
  - Off label use [Unknown]
  - Upper respiratory tract infection [Unknown]
  - COVID-19 [Recovered/Resolved]
  - Infusion related reaction [Recovered/Resolved]
  - Infection [Unknown]
